FAERS Safety Report 12695471 (Version 3)
Quarter: 2017Q2

REPORT INFORMATION
  Report Type: Report from Study
  Country: None (occurrence: PR)
  Receive Date: 20160829
  Receipt Date: 20170609
  Transmission Date: 20170830
  Serious: Yes (Death, Hospitalization)
  Sender: FDA-Public Use
  Company Number: PR-ABBVIE-16K-131-1649855-00

PATIENT
  Age: 54 Year
  Sex: Female

DRUGS (9)
  1. METFORMIN [Concomitant]
     Active Substance: METFORMIN HYDROCHLORIDE
     Indication: DIABETES MELLITUS
     Route: 048
     Dates: start: 20160406
  2. CATAFLAM [Concomitant]
     Active Substance: DICLOFENAC POTASSIUM
     Indication: INFLAMMATION
     Route: 048
  3. PREDNISONE. [Suspect]
     Active Substance: PREDNISONE
     Indication: PRODUCT USED FOR UNKNOWN INDICATION
     Route: 065
     Dates: start: 201605
  4. HUMIRA [Suspect]
     Active Substance: ADALIMUMAB
     Indication: RHEUMATOID ARTHRITIS
     Route: 058
     Dates: start: 20131227
  5. HUMIRA [Suspect]
     Active Substance: ADALIMUMAB
     Route: 058
     Dates: end: 201604
  6. NORFLEX [Concomitant]
     Active Substance: ORPHENADRINE CITRATE
     Indication: MUSCLE RELAXANT THERAPY
     Route: 048
  7. HUMIRA [Suspect]
     Active Substance: ADALIMUMAB
     Indication: POLYARTHRITIS
     Route: 058
     Dates: start: 201402
  8. PREDNISONE. [Suspect]
     Active Substance: PREDNISONE
     Route: 065
     Dates: start: 2016
  9. ATORVASTATIN [Concomitant]
     Active Substance: ATORVASTATIN
     Indication: HYPERCHOLESTEROLAEMIA
     Route: 048
     Dates: start: 20160406

REACTIONS (11)
  - Bronchitis [Unknown]
  - Thyroid mass [Not Recovered/Not Resolved]
  - Respiratory arrest [Fatal]
  - Lung infection [Unknown]
  - Viral upper respiratory tract infection [Not Recovered/Not Resolved]
  - Organising pneumonia [Fatal]
  - Oxygen saturation decreased [Unknown]
  - Breast disorder female [Recovering/Resolving]
  - Headache [Recovered/Resolved]
  - Blood pressure inadequately controlled [Unknown]
  - Diabetes mellitus inadequate control [Unknown]

NARRATIVE: CASE EVENT DATE: 2016
